FAERS Safety Report 8934041 (Version 4)
Quarter: 2013Q1

REPORT INFORMATION
  Report Type: Report from Study
  Country: AT (occurrence: AT)
  Receive Date: 20121129
  Receipt Date: 20130314
  Transmission Date: 20140127
  Serious: Yes (Hospitalization)
  Sender: FDA-Public Use
  Company Number: AT-NOVOPROD-357002

PATIENT
  Age: 63 Year
  Sex: Female
  Weight: 110 kg

DRUGS (7)
  1. LIRAGLUTIDE FLEXPEN [Suspect]
     Indication: OBESITY
     Dosage: 0.6 MG, QD
     Route: 058
     Dates: start: 20110615
  2. LIRAGLUTIDE FLEXPEN [Suspect]
     Dosage: 3.0 MG, QD
     Route: 058
     Dates: start: 20110713, end: 20120704
  3. LIRAGLUTIDE FLEXPEN [Suspect]
     Dosage: 3 MG, QD
     Route: 058
     Dates: start: 20120712, end: 20120729
  4. SORTIS [Concomitant]
     Indication: OSTEOARTHRITIS
     Dosage: 40 MG, QD
     Dates: start: 2008, end: 20120704
  5. EZETROL [Concomitant]
     Indication: OSTEOARTHRITIS
     Dosage: 10 MG, QD
     Dates: start: 2008, end: 20120704
  6. ENTEROBENE [Concomitant]
     Indication: DIARRHOEA
     Dosage: 2 MG, QD
     Dates: start: 20110801, end: 20110805
  7. AMLODIPIN                          /00972401/ [Concomitant]
     Indication: HYPERTENSION
     Dosage: 5 MG, QD
     Dates: start: 1998, end: 20120704

REACTIONS (1)
  - Gastroenteritis [Recovered/Resolved]
